FAERS Safety Report 10452712 (Version 1)
Quarter: 2014Q3

REPORT INFORMATION
  Report Type: Spontaneous
  Country: US (occurrence: None)
  Receive Date: 20140912
  Receipt Date: 20140912
  Transmission Date: 20150326
  Serious: Yes (Hospitalization)
  Sender: FDA-Public Use
  Company Number: None

PATIENT
  Age: 15 Year
  Sex: Female
  Weight: 53.8 kg

DRUGS (6)
  1. VINCRISTINE SULFATE. [Suspect]
     Active Substance: VINCRISTINE SULFATE
     Dates: start: 20140822
  2. DAUNORUBICIN [Suspect]
     Active Substance: DAUNORUBICIN
     Dates: end: 20140822
  3. PREDNISONE. [Suspect]
     Active Substance: PREDNISONE
     Dates: end: 20140822
  4. METHOTREXATE [Suspect]
     Active Substance: METHOTREXATE
     Dates: start: 20140829
  5. CYTARABINE. [Suspect]
     Active Substance: CYTARABINE
     Dates: start: 20140801
  6. ONCASPAR [Suspect]
     Active Substance: PEGASPARGASE
     Dates: start: 20140804

REACTIONS (9)
  - Pain [None]
  - Pyrexia [None]
  - Tachycardia [None]
  - Aspergillus infection [None]
  - Pleural effusion [None]
  - Respiratory distress [None]
  - Chest pain [None]
  - Pulmonary mass [None]
  - Depression [None]

NARRATIVE: CASE EVENT DATE: 20140831
